FAERS Safety Report 24260838 (Version 1)
Quarter: 2024Q3

REPORT INFORMATION
  Report Type: Other
  Country: US (occurrence: US)
  Receive Date: 20240828
  Receipt Date: 20240828
  Transmission Date: 20241016
  Serious: Yes (Hospitalization)
  Sender: BIONPHARMA
  Company Number: US-Bion-013743

PATIENT
  Age: 51 Year
  Sex: Female

DRUGS (2)
  1. AMANTADINE HYDROCHLORIDE [Suspect]
     Active Substance: AMANTADINE HYDROCHLORIDE
     Indication: Malignant catatonia
     Dosage: 100 MG/DAY
  2. AMANTADINE HYDROCHLORIDE [Suspect]
     Active Substance: AMANTADINE HYDROCHLORIDE
     Indication: Malignant catatonia
     Dosage: THREE TIMES DAILY

REACTIONS (2)
  - Apathy [Recovering/Resolving]
  - Decreased appetite [Recovering/Resolving]
